FAERS Safety Report 21402881 (Version 1)
Quarter: 2022Q4

REPORT INFORMATION
  Report Type: Spontaneous
  Country: US (occurrence: US)
  Receive Date: 20221003
  Receipt Date: 20221003
  Transmission Date: 20230113
  Serious: No
  Sender: FDA-Public Use
  Company Number: None

PATIENT
  Age: 53 Year
  Sex: Male
  Weight: 63.05 kg

DRUGS (2)
  1. VASCEPA [Suspect]
     Active Substance: ICOSAPENT ETHYL
     Indication: Blood triglycerides increased
  2. DESLORATADINE [Concomitant]
     Active Substance: DESLORATADINE
     Indication: Allergy prophylaxis

REACTIONS (7)
  - Nausea [Recovered/Resolved]
  - Nasopharyngitis [Recovering/Resolving]
  - Product odour abnormal [Unknown]
  - Off label use [Not Recovered/Not Resolved]
  - Product leakage [Unknown]
  - Product container issue [Unknown]
  - Product physical issue [Unknown]
